FAERS Safety Report 12655376 (Version 1)
Quarter: 2016Q3

REPORT INFORMATION
  Report Type: Spontaneous
  Country: US (occurrence: US)
  Receive Date: 20160816
  Receipt Date: 20160816
  Transmission Date: 20161109
  Serious: Yes (Hospitalization)
  Sender: FDA-Public Use
  Company Number: US-CELGENEUS-USA-2016083161

PATIENT
  Age: 83 Year
  Sex: Male
  Weight: 75.1 kg

DRUGS (2)
  1. REVLIMID [Suspect]
     Active Substance: LENALIDOMIDE
     Indication: PLASMA CELL MYELOMA
     Route: 048
     Dates: start: 201607
  2. REVLIMID [Suspect]
     Active Substance: LENALIDOMIDE
     Route: 048
     Dates: start: 2016

REACTIONS (4)
  - Cellulitis [Unknown]
  - Mucosal inflammation [Unknown]
  - Peripheral swelling [Unknown]
  - Asthenia [Unknown]

NARRATIVE: CASE EVENT DATE: 20160805
